FAERS Safety Report 8439474-8 (Version None)
Quarter: 2012Q2

REPORT INFORMATION
  Report Type: 
  Country: None (occurrence: None)
  Receive Date: 20120615
  Receipt Date: 20120607
  Transmission Date: 20120825
  Serious: Yes (Death)
  Sender: FDA-Public Use
  Company Number: IT-CELGENEUS-083-21660-12041417

PATIENT
  Sex: Female

DRUGS (2)
  1. ZOFRAN [Concomitant]
     Route: 065
  2. ABRAXANE [Suspect]
     Indication: BREAST CANCER METASTATIC
     Route: 041
     Dates: start: 20120306, end: 20120306

REACTIONS (1)
  - HEPATITIS FULMINANT [None]
